FAERS Safety Report 10026304 (Version 1)
Quarter: 2014Q1

REPORT INFORMATION
  Report Type: Spontaneous
  Country: JP (occurrence: JP)
  Receive Date: 20140321
  Receipt Date: 20140321
  Transmission Date: 20141002
  Serious: Yes (Other)
  Sender: FDA-Public Use
  Company Number: JP-009507513-1403JPN009504

PATIENT
  Age: 81 Year
  Sex: Male

DRUGS (9)
  1. GLACTIV [Suspect]
     Indication: TYPE 2 DIABETES MELLITUS
     Dosage: 100 MG, QD
     Route: 048
     Dates: start: 20140212, end: 20140227
  2. TRESIBA [Concomitant]
     Indication: TYPE 2 DIABETES MELLITUS
     Dosage: 6 IU, QD AFTER DINNER
     Dates: start: 20140212, end: 20140219
  3. TRESIBA [Concomitant]
     Dosage: 4 IU, QD AFTER DINNER
     Dates: start: 20140220, end: 20140222
  4. TRESIBA [Concomitant]
     Dosage: 2 IU, QD
     Dates: start: 20140223, end: 20140226
  5. FINIBAX [Concomitant]
     Indication: MENINGITIS
     Dosage: 0.5 G, Q8H
     Dates: start: 20140213, end: 20140219
  6. VICCILLIN [Concomitant]
     Indication: MENINGITIS
     Dosage: 4 G, Q8H
     Dates: end: 20140212
  7. ISOTONIC SODIUM CHLORIDE SOLUTION PL FUSO [Concomitant]
  8. AMARYL [Concomitant]
     Dosage: 0.5 MG, QD AFTER BREAKFAST
     Dates: start: 20140220, end: 20140222
  9. AMARYL [Concomitant]
     Dosage: 1 MG, QD
     Dates: start: 20140223

REACTIONS (1)
  - Hyponatraemia [Recovered/Resolved]
